FAERS Safety Report 6100493-8 (Version None)
Quarter: 2009Q1

REPORT INFORMATION
  Report Type: 
  Country: None (occurrence: None)
  Receive Date: 20090303
  Receipt Date: 20090224
  Transmission Date: 20090719
  Serious: Yes (Other)
  Sender: FDA-Public Use
  Company Number: FR-AVENTIS-200910497FR

PATIENT
  Age: 38 Year
  Sex: Female
  Weight: 64 kg

DRUGS (2)
  1. TAXOTERE [Suspect]
     Route: 042
     Dates: start: 20080801, end: 20081017
  2. HERCEPTIN [Concomitant]
     Dates: start: 20080801

REACTIONS (9)
  - ALDOLASE INCREASED [None]
  - ARTHRALGIA [None]
  - BLOOD CREATINE PHOSPHOKINASE INCREASED [None]
  - BLOOD LACTATE DEHYDROGENASE INCREASED [None]
  - HEPATIC ENZYME INCREASED [None]
  - MYALGIA [None]
  - OEDEMA PERIPHERAL [None]
  - ONYCHOLYSIS [None]
  - POLYMYOSITIS [None]
